FAERS Safety Report 20853826 (Version 5)
Quarter: 2022Q3

REPORT INFORMATION
  Report Type: Spontaneous
  Country: JP (occurrence: JP)
  Receive Date: 20220520
  Receipt Date: 20220819
  Transmission Date: 20221026
  Serious: Yes (Hospitalization, Other)
  Sender: FDA-Public Use
  Company Number: JP-GSKNCCC-Case-01492613_AE-58086

PATIENT

DRUGS (6)
  1. NUCALA [Suspect]
     Active Substance: MEPOLIZUMAB
     Indication: Asthma
     Dosage: 100 MG / 4W
  2. PREDONINE [Suspect]
     Active Substance: PREDNISOLONE
     Indication: Infection
     Dosage: 50 MG
  3. PREDONINE [Suspect]
     Active Substance: PREDNISOLONE
     Dosage: 40 MG
  4. PREDONINE [Suspect]
     Active Substance: PREDNISOLONE
     Dosage: 30 MG
  5. SOLU-MEDROL [Suspect]
     Active Substance: METHYLPREDNISOLONE SODIUM SUCCINATE
     Indication: Circulatory collapse
     Dosage: 1000 MG, QD
  6. SOLU-MEDROL [Suspect]
     Active Substance: METHYLPREDNISOLONE SODIUM SUCCINATE
     Indication: Septic shock

REACTIONS (6)
  - Circulatory collapse [Recovered/Resolved]
  - Septic shock [Recovered/Resolved]
  - Infection [Recovered/Resolved]
  - COVID-19 [Recovered/Resolved]
  - Pyrexia [Recovered/Resolved]
  - C-reactive protein increased [Recovered/Resolved]

NARRATIVE: CASE EVENT DATE: 20220517
